FAERS Safety Report 11225495 (Version 1)
Quarter: 2015Q2

REPORT INFORMATION
  Report Type: Spontaneous
  Country: JP (occurrence: JP)
  Receive Date: 20150629
  Receipt Date: 20150629
  Transmission Date: 20150821
  Serious: Yes (Other)
  Sender: FDA-Public Use
  Company Number: JP-JNJFOC-20150423869

PATIENT
  Age: 9 Decade
  Sex: Male
  Weight: 64 kg

DRUGS (6)
  1. GLYCORAN [Concomitant]
     Active Substance: GLYCERIN
     Indication: TYPE 2 DIABETES MELLITUS
     Route: 065
  2. BROTIZOLAM [Concomitant]
     Active Substance: BROTIZOLAM
     Indication: INSOMNIA
     Route: 065
  3. TRAMAL [Suspect]
     Active Substance: TRAMADOL
     Indication: PAIN
     Route: 048
  4. TRAMAL [Suspect]
     Active Substance: TRAMADOL
     Indication: PAIN
     Route: 048
  5. TRAMAL [Suspect]
     Active Substance: TRAMADOL
     Indication: PAIN
     Route: 048
  6. ATORVASTATIN [Concomitant]
     Active Substance: ATORVASTATIN
     Indication: TYPE 2 DIABETES MELLITUS
     Route: 065

REACTIONS (5)
  - Insomnia [Recovering/Resolving]
  - Hyperhidrosis [Unknown]
  - Serotonin syndrome [Recovering/Resolving]
  - Overdose [Recovered/Resolved]
  - Dizziness [Unknown]
